FAERS Safety Report 16929946 (Version 1)
Quarter: 2019Q4

REPORT INFORMATION
  Report Type: Spontaneous
  Country: PT (occurrence: PT)
  Receive Date: 20191017
  Receipt Date: 20191017
  Transmission Date: 20200122
  Serious: Yes (Hospitalization, Other)
  Sender: FDA-Public Use
  Company Number: PT-LUPIN PHARMACEUTICALS INC.-2019-06656

PATIENT
  Age: 27 Year
  Sex: Female
  Weight: 83 kg

DRUGS (2)
  1. MINOCYCLINE [Suspect]
     Active Substance: MINOCYCLINE HYDROCHLORIDE
     Indication: FOLLICULITIS
     Dosage: 100 MILLIGRAM, BID (EVERY 12 HOURS)
     Route: 065
  2. LEVONORGESTREL. [Suspect]
     Active Substance: LEVONORGESTREL
     Indication: INTRAUTERINE CONTRACEPTION
     Dosage: UNK
     Route: 015

REACTIONS (4)
  - Papilloedema [Recovering/Resolving]
  - Idiopathic intracranial hypertension [Recovered/Resolved]
  - Scintillating scotoma [Recovered/Resolved]
  - Vitreous haemorrhage [Unknown]
